FAERS Safety Report 18742616 (Version 1)
Quarter: 2021Q1

REPORT INFORMATION
  Report Type: Spontaneous
  Country: US (occurrence: US)
  Receive Date: 20210114
  Receipt Date: 20210114
  Transmission Date: 20210419
  Serious: No
  Sender: FDA-Public Use
  Company Number: US-US-PROVELL PHARMACEUTICALS LLC-9211815

PATIENT
  Sex: Female

DRUGS (2)
  1. SYNTHROID [Concomitant]
     Active Substance: LEVOTHYROXINE SODIUM
     Indication: PRODUCT USED FOR UNKNOWN INDICATION
  2. EUTHYROX [Suspect]
     Active Substance: LEVOTHYROXINE SODIUM
     Indication: PRODUCT USED FOR UNKNOWN INDICATION

REACTIONS (3)
  - Nausea [Recovering/Resolving]
  - Abdominal tenderness [Recovering/Resolving]
  - Gastrooesophageal reflux disease [Recovering/Resolving]
